FAERS Safety Report 4991669-1 (Version None)
Quarter: 2006Q2

REPORT INFORMATION
  Report Type: 
  Country: None (occurrence: None)
  Receive Date: 20060504
  Receipt Date: 20060427
  Transmission Date: 20061013
  Serious: Yes (Other)
  Sender: FDA-Public Use
  Company Number: GB-AVENTIS-200614541GDDC

PATIENT
  Age: 36 Year
  Sex: Female

DRUGS (2)
  1. ARAVA [Suspect]
     Indication: PSORIATIC ARTHROPATHY
     Dosage: DOSE: UNK
  2. ENBREL [Suspect]
     Indication: PSORIATIC ARTHROPATHY
     Dosage: DOSE: UNK
     Dates: start: 20051101

REACTIONS (1)
  - COLITIS ULCERATIVE [None]
